FAERS Safety Report 5142792-2 (Version None)
Quarter: 2006Q4

REPORT INFORMATION
  Report Type: 
  Country: None (occurrence: None)
  Receive Date: 20061027
  Receipt Date: 20061016
  Transmission Date: 20070319
  Serious: Yes (Disabling)
  Sender: FDA-Public Use
  Company Number: US200610002602

PATIENT
  Age: 45 Year
  Sex: Male

DRUGS (7)
  1. HUMULIN N [Suspect]
     Indication: DIABETES MELLITUS
     Dates: start: 20061014
  2. ZOLOFT [Concomitant]
  3. ADVICOR [Concomitant]
  4. NEURONTIN [Concomitant]
  5. TRICOR [Concomitant]
  6. MOBIC [Concomitant]
  7. LANTUS [Concomitant]

REACTIONS (4)
  - BLINDNESS [None]
  - BLOOD GLUCOSE INCREASED [None]
  - DRUG INEFFECTIVE [None]
  - PHARMACEUTICAL PRODUCT COMPLAINT [None]
